FAERS Safety Report 8144195-5 (Version None)
Quarter: 2012Q1

REPORT INFORMATION
  Report Type: 
  Country: None (occurrence: None)
  Receive Date: 20120217
  Receipt Date: 20120215
  Transmission Date: 20120608
  Serious: Yes (Death, Other)
  Sender: FDA-Public Use
  Company Number: GB-ROXANE LABORATORIES, INC.-2012-RO-00662RO

PATIENT
  Age: 54 Year
  Sex: Male

DRUGS (1)
  1. DEXAMETHASONE [Suspect]
     Indication: STRIDOR
     Dosage: 24 MG

REACTIONS (2)
  - PNEUMATOSIS [None]
  - IMPAIRED HEALING [None]
